FAERS Safety Report 6543362-1 (Version None)
Quarter: 2010Q1

REPORT INFORMATION
  Report Type: 
  Country: None (occurrence: None)
  Receive Date: 20100120
  Receipt Date: 20100112
  Transmission Date: 20100710
  Serious: Yes (Death)
  Sender: FDA-Public Use
  Company Number: US-ROCHE-496311

PATIENT
  Sex: Male
  Weight: 104.7 kg

DRUGS (7)
  1. BEVACIZUMAB [Suspect]
     Indication: COLORECTAL CANCER
     Dosage: 5 MG/KG, Q2W
     Route: 042
     Dates: start: 20070228
  2. CAMPTOSAR [Suspect]
     Indication: COLORECTAL CANCER
     Dosage: 400 MG, Q2W
     Route: 042
     Dates: start: 20070228
  3. LEUCOVORIN CALCIUM [Suspect]
     Indication: COLORECTAL CANCER
     Dosage: 400 MG, Q2W
     Route: 042
     Dates: start: 20070228
  4. 5-FU [Suspect]
     Indication: COLORECTAL CANCER
     Dosage: 900 MG, Q2W
     Route: 042
     Dates: start: 20070228
  5. 5-FU [Suspect]
     Dosage: 5450 MG, Q2W
     Route: 042
     Dates: start: 20070224
  6. NEXIUM [Concomitant]
  7. LIPITOR [Concomitant]
     Dosage: 40 MG, QHS
     Route: 048

REACTIONS (1)
  - CARDIAC ARREST [None]
